FAERS Safety Report 12915383 (Version 1)
Quarter: 2016Q4

REPORT INFORMATION
  Report Type: Spontaneous
  Country: US (occurrence: US)
  Receive Date: 20161106
  Receipt Date: 20161106
  Transmission Date: 20170207
  Serious: No
  Sender: FDA-Public Use
  Company Number: US-RELYPSA-RLY2016002150

PATIENT
  Sex: Male

DRUGS (11)
  1. FUROSEMIDE. [Concomitant]
     Active Substance: FUROSEMIDE
  2. DIAZEPAM. [Concomitant]
     Active Substance: DIAZEPAM
  3. SYNTHROID [Concomitant]
     Active Substance: LEVOTHYROXINE SODIUM
  4. LISINOPRIL. [Concomitant]
     Active Substance: LISINOPRIL
  5. VELTASSA [Suspect]
     Active Substance: PATIROMER
     Indication: HYPERKALAEMIA
     Dosage: 8.4 G, QD
     Route: 048
  6. VIAGRA [Concomitant]
     Active Substance: SILDENAFIL CITRATE
  7. HUMALOG [Concomitant]
     Active Substance: INSULIN LISPRO
  8. DILTIAZEM HCL EXTE-REL [Concomitant]
     Active Substance: DILTIAZEM HYDROCHLORIDE
  9. ATORVASTATIN CALCIUM. [Concomitant]
     Active Substance: ATORVASTATIN CALCIUM
  10. LEVEMIR [Concomitant]
     Active Substance: INSULIN DETEMIR
  11. CARDURA [Concomitant]
     Active Substance: DOXAZOSIN MESYLATE

REACTIONS (2)
  - Blood potassium increased [Unknown]
  - Nausea [Recovered/Resolved]
